FAERS Safety Report 17295494 (Version 1)
Quarter: 2020Q1

REPORT INFORMATION
  Report Type: Spontaneous
  Country: SI (occurrence: SI)
  Receive Date: 20200121
  Receipt Date: 20200121
  Transmission Date: 20200409
  Serious: Yes (Disabling)
  Sender: FDA-Public Use
  Company Number: SI-PFIZER INC-2020024604

PATIENT
  Age: 57 Year
  Sex: Male

DRUGS (10)
  1. MAREVAN [Concomitant]
     Active Substance: WARFARIN SODIUM
     Dosage: 3 MG; ACCORDING TO THE SCHEME
     Route: 048
  2. NOLPAZA [Concomitant]
     Active Substance: PANTOPRAZOLE SODIUM
     Dosage: 40 MG; 1 TBL IN THE MORNINGS
     Route: 048
  3. LEVEMIR [Concomitant]
     Active Substance: INSULIN DETEMIR
     Dosage: 100 E/ML; 26 UNITS IN THE EVENINGS
     Route: 050
  4. KAMIREN [Concomitant]
     Dosage: 4 MG; 2X1 TBL
     Route: 048
  5. GLUCOPHAGE [Concomitant]
     Active Substance: METFORMIN HYDROCHLORIDE
     Dosage: 500 MG; 2X1 /DAY
     Route: 048
  6. AMLOPIN [AMLODIPINE] [Concomitant]
     Dosage: 10 MG; 1 TBL IN THE MORNINGS
     Route: 048
  7. EDEMID [Concomitant]
     Active Substance: FUROSEMIDE
     Dosage: 40 MG; 1 TBL IN THE MORNINGS
     Route: 048
  8. NOVORAPID [Concomitant]
     Active Substance: INSULIN ASPART
     Dosage: 100 UNIT/ML; 16+10+10
     Route: 050
  9. MEDROL [Suspect]
     Active Substance: METHYLPREDNISOLONE
     Dosage: 16 MG
     Route: 048
     Dates: start: 20191112, end: 20191216
  10. PRENEWEL [Concomitant]
     Active Substance: INDAPAMIDE\PERINDOPRIL ERBUMINE
     Dosage: 8/25 MG; 1 TBL IN THE MORNINGS
     Route: 048

REACTIONS (1)
  - Memory impairment [Not Recovered/Not Resolved]

NARRATIVE: CASE EVENT DATE: 20191112
